FAERS Safety Report 7411636-8 (Version None)
Quarter: 2011Q2

REPORT INFORMATION
  Report Type: 
  Country: None (occurrence: None)
  Receive Date: 20110405
  Receipt Date: 20110317
  Transmission Date: 20111010
  Serious: Yes (Death)
  Sender: FDA-Public Use
  Company Number: 2011P1005164

PATIENT
  Age: 20 Year
  Sex: Female

DRUGS (5)
  1. ALPRAZOLAM [Suspect]
     Dosage: PARN
     Route: 051
  2. ETHANOL (NO PREF. NAME) [Suspect]
     Dosage: PARN
     Route: 051
  3. OXYCONTIN [Suspect]
     Dosage: PARN
     Route: 051
  4. AMITRIPTYLINE (NO PREF. NAME) [Suspect]
     Dosage: PARN
     Route: 051
  5. ACETAMINOPHEN/HYDROCODONE (NO PREF. NAME) [Suspect]
     Dosage: PARN
     Route: 051

REACTIONS (1)
  - INTENTIONAL DRUG MISUSE [None]
